FAERS Safety Report 8588132 (Version 2)
Quarter: 2012Q4

REPORT INFORMATION
  Report Type: 
  Country: FR (occurrence: FR)
  Receive Date: 20120531
  Receipt Date: 20120920
  Transmission Date: 20130627
  Serious: Yes (Hospitalization, Disabling, Other)
  Sender: FDA-Public Use
  Company Number: FR-ASTRAZENECA-2012SE33668

PATIENT
  Age: 22471 Day
  Sex: Female
  Weight: 48 kg

DRUGS (1)
  1. DIPRIVAN [Suspect]
     Indication: GENERAL ANAESTHESIA
     Route: 042
     Dates: start: 20111006, end: 20111006

REACTIONS (4)
  - Extravasation [Recovered/Resolved]
  - Skin necrosis [Recovered/Resolved]
  - Chemical injury [Recovering/Resolving]
  - Hypokinesia [Not Recovered/Not Resolved]
